FAERS Safety Report 16025090 (Version 1)
Quarter: 2019Q1

REPORT INFORMATION
  Report Type: Spontaneous
  Country: US (occurrence: US)
  Receive Date: 20190301
  Receipt Date: 20190301
  Transmission Date: 20190418
  Serious: No
  Sender: FDA-Public Use
  Company Number: US-SA-2019SA056345

PATIENT
  Age: 76 Year
  Sex: Male

DRUGS (1)
  1. LOVENOX [Suspect]
     Active Substance: ENOXAPARIN SODIUM
     Indication: POSTOPERATIVE CARE
     Dosage: 40 MG, QD
     Route: 051
     Dates: start: 20190214

REACTIONS (2)
  - Injection site bruising [Unknown]
  - Rash macular [Unknown]
